FAERS Safety Report 20264064 (Version 2)
Quarter: 2022Q1

REPORT INFORMATION
  Report Type: Report from Study
  Country: IT (occurrence: IT)
  Receive Date: 20211231
  Receipt Date: 20220110
  Transmission Date: 20220423
  Serious: Yes (Hospitalization, Other)
  Sender: FDA-Public Use
  Company Number: IT-GLAXOSMITHKLINE-IT2021EME263337

PATIENT
  Age: 77 Year
  Sex: Female
  Weight: 60 kg

DRUGS (4)
  1. NIRAPARIB [Suspect]
     Active Substance: NIRAPARIB
     Indication: Ovarian cancer stage III
     Dosage: 100 MG, QD
     Route: 048
     Dates: start: 20210810
  2. NEBIVOLOL HYDROCHLORIDE [Concomitant]
     Active Substance: NEBIVOLOL HYDROCHLORIDE
     Indication: Hypertension
     Dosage: 5 MG, BID
     Route: 048
     Dates: start: 2011
  3. BUTHIAZIDE\CANRENOATE POTASSIUM [Concomitant]
     Active Substance: BUTHIAZIDE\CANRENOATE POTASSIUM
     Indication: Hypertension
     Dosage: 50 + 5 MG, BID
     Route: 048
     Dates: start: 2011
  4. ASCRIPTIN (ACETYLSALICYLIC ACID) [Concomitant]
     Indication: Hypertension
     Dosage: 300 MG, BID
     Route: 048
     Dates: start: 2011

REACTIONS (3)
  - Pulmonary embolism [Not Recovered/Not Resolved]
  - Deep vein thrombosis [Unknown]
  - Thrombocytopenia [Unknown]

NARRATIVE: CASE EVENT DATE: 20211222
